FAERS Safety Report 4570743-8 (Version None)
Quarter: 2005Q1

REPORT INFORMATION
  Report Type: 
  Country: None (occurrence: None)
  Receive Date: 20050202
  Receipt Date: 20050118
  Transmission Date: 20050727
  Serious: Yes (Hospitalization)
  Sender: FDA-Public Use
  Company Number: EWC041041208

PATIENT
  Age: 72 Year
  Sex: Female
  Weight: 97 kg

DRUGS (7)
  1. PEMETREXED [Suspect]
     Indication: MESOTHELIOMA
     Dosage: 955 MG/1 OTHER
     Dates: start: 20040706
  2. CARBOPLATIN [Suspect]
     Indication: MESOTHELIOMA
     Dosage: 380 MG/1 OTHER
     Dates: start: 20040706
  3. INSULIN [Concomitant]
  4. EPOGEN [Concomitant]
  5. FOLIC ACID [Concomitant]
  6. DEXAMETHASONE [Concomitant]
  7. VITAMIN B-12 [Concomitant]

REACTIONS (10)
  - ASTHENIA [None]
  - CONSTIPATION [None]
  - DISEASE PROGRESSION [None]
  - DIVERTICULITIS [None]
  - DIVERTICULUM INTESTINAL [None]
  - HAEMOGLOBIN DECREASED [None]
  - NAUSEA [None]
  - PANCYTOPENIA [None]
  - VOMITING [None]
  - WHITE BLOOD CELL COUNT DECREASED [None]
